FAERS Safety Report 4491983-2 (Version None)
Quarter: 2004Q4

REPORT INFORMATION
  Report Type: 
  Country: None (occurrence: None)
  Receive Date: 20041029
  Receipt Date: 20041029
  Transmission Date: 20050328
  Serious: Yes (Other)
  Sender: FDA-Public Use
  Company Number: None

PATIENT
  Sex: Female
  Weight: 63.5036 kg

DRUGS (9)
  1. GAMUNEX [Suspect]
     Indication: DERMATOMYOSITIS
     Dosage: 64 GM/D X2 EVERY 6 WKS INTRAVENOU
     Route: 042
     Dates: start: 20041027, end: 20041027
  2. GAMUNEX [Suspect]
  3. ACTONEL [Concomitant]
  4. PREDNISONE [Concomitant]
  5. FOLIC ACID [Concomitant]
  6. METHOTREXATE [Concomitant]
  7. SOLU-CORTEF [Concomitant]
  8. TYLENOL [Concomitant]
  9. BENADRYL [Concomitant]

REACTIONS (3)
  - INFUSION RELATED REACTION [None]
  - PHARMACEUTICAL PRODUCT COMPLAINT [None]
  - URTICARIA [None]
